FAERS Safety Report 12574631 (Version 1)
Quarter: 2016Q3

REPORT INFORMATION
  Report Type: Spontaneous
  Country: GB (occurrence: GB)
  Receive Date: 20160720
  Receipt Date: 20160720
  Transmission Date: 20161109
  Serious: Yes (Hospitalization)
  Sender: FDA-Public Use
  Company Number: GB-CONCORDIA PHARMACEUTICALS INC.-GSH201607-003605

PATIENT
  Age: 75 Year
  Sex: Female

DRUGS (3)
  1. DIGOXIN. [Suspect]
     Active Substance: DIGOXIN
     Route: 065
  2. TILDIEM [Suspect]
     Active Substance: DILTIAZEM HYDROCHLORIDE
     Route: 065
  3. TILDIEM [Suspect]
     Active Substance: DILTIAZEM HYDROCHLORIDE
     Dosage: 120 TWICE A DAY FOR A TOTAL DOSE OF 240 MG
     Route: 065
     Dates: start: 201604

REACTIONS (4)
  - Cholecystitis infective [Unknown]
  - Alopecia [Unknown]
  - Salivary hypersecretion [Unknown]
  - Dysgeusia [Unknown]

NARRATIVE: CASE EVENT DATE: 201604
